FAERS Safety Report 13304535 (Version 2)
Quarter: 2017Q2

REPORT INFORMATION
  Report Type: Spontaneous
  Country: US (occurrence: US)
  Receive Date: 20170308
  Receipt Date: 20170424
  Transmission Date: 20170830
  Serious: Yes (Hospitalization, Other)
  Sender: FDA-Public Use
  Company Number: US-B.I. PHARMACEUTICALS,INC./RIDGEFIELD-2017-BI-011806

PATIENT
  Age: 15 Year
  Sex: Female

DRUGS (3)
  1. XOPENEX [Concomitant]
     Active Substance: LEVALBUTEROL HYDROCHLORIDE
     Indication: PRODUCT USED FOR UNKNOWN INDICATION
     Route: 065
  2. VENTOLIN [Concomitant]
     Active Substance: ALBUTEROL SULFATE
     Indication: PRODUCT USED FOR UNKNOWN INDICATION
     Route: 065
  3. COMBIVENT [Suspect]
     Active Substance: ALBUTEROL SULFATE\IPRATROPIUM BROMIDE
     Indication: STATUS ASTHMATICUS
     Dosage: FORM STRENGTH/UNIT DOSE: 20 MCG /100 MCG
     Route: 065

REACTIONS (6)
  - Status asthmaticus [Unknown]
  - Feeling abnormal [Unknown]
  - Off label use [Unknown]
  - Hospitalisation [Unknown]
  - Malaise [Unknown]
  - Drug ineffective [Unknown]
